FAERS Safety Report 24353269 (Version 1)
Quarter: 2024Q3

REPORT INFORMATION
  Report Type: Spontaneous
  Country: JP (occurrence: JP)
  Receive Date: 20240923
  Receipt Date: 20240923
  Transmission Date: 20241017
  Serious: No
  Sender: ROCHE
  Company Number: JP-CHUGAI-2023040430

PATIENT
  Age: 46 Year
  Sex: Male

DRUGS (6)
  1. HERCEPTIN [Suspect]
     Active Substance: TRASTUZUMAB
     Indication: Salivary gland cancer
     Route: 037
  2. HERCEPTIN [Suspect]
     Active Substance: TRASTUZUMAB
     Indication: Metastases to meninges
     Route: 037
  3. HERCEPTIN [Suspect]
     Active Substance: TRASTUZUMAB
     Route: 037
  4. HERCEPTIN [Concomitant]
     Active Substance: TRASTUZUMAB
     Indication: Salivary gland cancer
     Route: 042
  5. DOCETAXEL [Concomitant]
     Active Substance: DOCETAXEL\DOCETAXEL ANHYDROUS
     Indication: Salivary gland cancer
  6. METHOTREXATE [Concomitant]
     Active Substance: METHOTREXATE

REACTIONS (3)
  - Sensory disturbance [Recovered/Resolved]
  - Off label use [Unknown]
  - Off label use [Unknown]
